FAERS Safety Report 25004045 (Version 1)
Quarter: 2025Q1

REPORT INFORMATION
  Report Type: Spontaneous
  Country: US (occurrence: US)
  Receive Date: 20250224
  Receipt Date: 20250224
  Transmission Date: 20250408
  Serious: No
  Sender: LANTHEUS MEDICAL IMAGING
  Company Number: US-LANTHEUS-LMI-2024-00384

PATIENT
  Age: 56 Year
  Sex: Female
  Weight: 116 kg

DRUGS (9)
  1. DEFINITY [Suspect]
     Active Substance: PERFLUTREN
     Indication: Echocardiogram
     Route: 042
     Dates: start: 20240320, end: 20240320
  2. LIPITOR [Concomitant]
     Active Substance: ATORVASTATIN CALCIUM
     Indication: Product used for unknown indication
  3. TRAMADOL [Concomitant]
     Active Substance: TRAMADOL
     Indication: Product used for unknown indication
  4. LOSARTAN [Concomitant]
     Active Substance: LOSARTAN
     Indication: Product used for unknown indication
  5. GABAPENTIN [Concomitant]
     Active Substance: GABAPENTIN
     Indication: Product used for unknown indication
  6. NITROGLYCERIN [Concomitant]
     Active Substance: NITROGLYCERIN
     Indication: Product used for unknown indication
  7. TICAGRELOR [Concomitant]
     Active Substance: TICAGRELOR
     Indication: Product used for unknown indication
  8. BUMEX [Concomitant]
     Active Substance: BUMETANIDE
     Indication: Diastolic dysfunction
  9. LASIX [Concomitant]
     Active Substance: FUROSEMIDE
     Indication: Diastolic dysfunction
     Dosage: 10 MILLIGRAM, QD

REACTIONS (13)
  - Weight increased [Unknown]
  - Road traffic accident [Unknown]
  - Malaise [Unknown]
  - Dyspnoea exertional [Unknown]
  - Dyspnoea paroxysmal nocturnal [Unknown]
  - Abdominal distension [Unknown]
  - Oedema [Unknown]
  - Rales [Unknown]
  - Contusion [Unknown]
  - Neck pain [Recovered/Resolved]
  - Chest pain [Recovered/Resolved]
  - Back pain [Recovered/Resolved]
  - Fatigue [Unknown]

NARRATIVE: CASE EVENT DATE: 20240320
